FAERS Safety Report 16625282 (Version 4)
Quarter: 2019Q4

REPORT INFORMATION
  Report Type: Report from Study
  Country: JP (occurrence: JP)
  Receive Date: 20190724
  Receipt Date: 20191008
  Transmission Date: 20200122
  Serious: Yes (Hospitalization)
  Sender: FDA-Public Use
  Company Number: JP-UCBSA-2019030189

PATIENT
  Age: 2 Year
  Sex: Male
  Weight: 11 kg

DRUGS (5)
  1. LEVETIRACETAM. [Suspect]
     Active Substance: LEVETIRACETAM
     Dosage: 40 MILLIGRAM/KILOGRAM, ONCE DAILY (QD)
     Route: 048
     Dates: start: 20190710, end: 20190712
  2. LEVETIRACETAM. [Suspect]
     Active Substance: LEVETIRACETAM
     Dosage: 20 MILLIGRAM/KILOGRAM, ONCE DAILY (QD)
     Route: 048
     Dates: start: 20190712, end: 20190723
  3. LEVETIRACETAM. [Suspect]
     Active Substance: LEVETIRACETAM
     Indication: PARTIAL SEIZURES
     Dosage: 20 MILLIGRAM/KILOGRAM, ONCE DAILY (QD)
     Route: 048
     Dates: start: 20190628, end: 20190710
  4. DEPAKENE [VALPROATE SODIUM] [Concomitant]
     Active Substance: VALPROATE SODIUM
     Indication: FRONTAL LOBE EPILEPSY
     Dosage: 4 MILLILITER, ONCE DAILY (QD)
     Route: 048
     Dates: start: 20190528
  5. DIAPP [Concomitant]
     Active Substance: DIAZEPAM
     Indication: FRONTAL LOBE EPILEPSY
     Dosage: UNK, AS NEEDED (PRN)
     Route: 054
     Dates: start: 20190220

REACTIONS (1)
  - Dehydration [Recovered/Resolved]

NARRATIVE: CASE EVENT DATE: 20190711
